FAERS Safety Report 22137709 (Version 1)
Quarter: 2023Q1

REPORT INFORMATION
  Report Type: Report from Study
  Country: CO (occurrence: CO)
  Receive Date: 20230325
  Receipt Date: 20230325
  Transmission Date: 20230418
  Serious: Yes (Hospitalization, Other)
  Sender: FDA-Public Use
  Company Number: CO-ABBVIE-22K-036-4398010-00

PATIENT
  Sex: Female
  Weight: 77 kg

DRUGS (9)
  1. HUMIRA [Suspect]
     Active Substance: ADALIMUMAB
     Indication: Psoriasis
     Dosage: FORM STRENGTH:40 MG
     Route: 058
     Dates: start: 20160125
  2. HUMIRA [Suspect]
     Active Substance: ADALIMUMAB
  3. LINAGLIPTIN [Concomitant]
     Active Substance: LINAGLIPTIN
     Indication: Diabetes mellitus
     Dosage: 1 UNKNOWN
  4. METOPROLOL [Concomitant]
     Active Substance: METOPROLOL
     Indication: Cardiac disorder
  5. VALSARTAN [Concomitant]
     Active Substance: VALSARTAN
     Indication: Hypertension
     Route: 048
  6. VALSARTAN [Concomitant]
     Active Substance: VALSARTAN
     Indication: Hypertension
     Dosage: ONCE A DAY
     Route: 048
     Dates: start: 2016
  7. VALSARTAN [Concomitant]
     Active Substance: VALSARTAN
     Indication: Hypertension
     Route: 048
  8. NIFEDIPINE [Concomitant]
     Active Substance: NIFEDIPINE
     Indication: Hypertension
     Dosage: 2 UNKNOWN
  9. NIFEDIPINE [Concomitant]
     Active Substance: NIFEDIPINE
     Indication: Hypertension
     Dosage: 1 IN THE MORNING, 1 IN THE AFTERNOON
     Route: 048

REACTIONS (16)
  - Osteoarthritis [Recovered/Resolved]
  - Arthritis [Recovering/Resolving]
  - Skin plaque [Recovered/Resolved]
  - Dizziness [Recovering/Resolving]
  - Dementia Alzheimer^s type [Unknown]
  - Acidosis [Recovered/Resolved]
  - Joint dislocation [Recovering/Resolving]
  - Adverse drug reaction [Not Recovered/Not Resolved]
  - Cardiac disorder [Recovered/Resolved]
  - Amnesia [Not Recovered/Not Resolved]
  - Balance disorder [Recovering/Resolving]
  - Unevaluable event [Not Recovered/Not Resolved]
  - Blood pressure increased [Not Recovered/Not Resolved]
  - Fall [Recovering/Resolving]
  - Diabetes mellitus [Recovered/Resolved]
  - Blood pressure increased [Recovered/Resolved]

NARRATIVE: CASE EVENT DATE: 20190101
